FAERS Safety Report 4592882-8 (Version None)
Quarter: 2005Q1

REPORT INFORMATION
  Report Type: 
  Country: None (occurrence: None)
  Receive Date: 20050218
  Receipt Date: 20050209
  Transmission Date: 20050727
  Serious: Yes (Hospitalization)
  Sender: FDA-Public Use
  Company Number: 2005-02-0690

PATIENT
  Age: 71 Year
  Sex: Female

DRUGS (5)
  1. BECLOMETHASONE DIPROPIONATE [Suspect]
     Indication: ASTHMA
     Dosage: ORAL AER INH
     Route: 048
  2. THEO-DUR [Suspect]
     Indication: ASTHMA
     Dosage: ORAL
     Route: 048
  3. THEO-DUR [Suspect]
  4. ALLOPURINOL [Suspect]
     Indication: HYPERLIPIDAEMIA
     Dosage: ORAL
     Route: 048
  5. ALLOPURINOL [Suspect]

REACTIONS (2)
  - HYPERURICAEMIA [None]
  - HYPOKALAEMIA [None]
